FAERS Safety Report 23677583 (Version 1)
Quarter: 2024Q1

REPORT INFORMATION
  Report Type: Spontaneous
  Country: US (occurrence: None)
  Receive Date: 20240326
  Receipt Date: 20240326
  Transmission Date: 20240409
  Serious: No
  Sender: FDA-Public Use
  Company Number: None

PATIENT
  Age: 60 Year
  Sex: Female
  Weight: 81.9 kg

DRUGS (8)
  1. POLYETHYLENE GLYCOL 3350 [Suspect]
     Active Substance: POLYETHYLENE GLYCOL 3350
     Indication: Colonoscopy
     Dosage: OTHER ROUTE : DISSOLVED IN CLEAR LIQUID THEN BY MOUTH;?
     Route: 050
     Dates: start: 20240326
  2. trial for AS1763 [Concomitant]
  3. LEVOTHYROXINE [Concomitant]
  4. bupropoin [Concomitant]
  5. ATORVASTATIN [Concomitant]
     Active Substance: ATORVASTATIN
  6. METAMUCIL [Concomitant]
     Active Substance: PLANTAGO SEED
  7. philip fiber gummies [Concomitant]
  8. POLYETHYLENE GLYCOL 3350 [Concomitant]
     Active Substance: POLYETHYLENE GLYCOL 3350

REACTIONS (5)
  - Feeling cold [None]
  - Dizziness [None]
  - Malaise [None]
  - Constipation [None]
  - Skin tightness [None]

NARRATIVE: CASE EVENT DATE: 20240326
